FAERS Safety Report 13659157 (Version 4)
Quarter: 2017Q3

REPORT INFORMATION
  Report Type: Spontaneous
  Country: JP (occurrence: JP)
  Receive Date: 20170616
  Receipt Date: 20170905
  Transmission Date: 20171127
  Serious: Yes (Death, Other)
  Sender: FDA-Public Use
  Company Number: JP-UCBSA-2017022264

PATIENT
  Age: 76 Year
  Sex: Male
  Weight: 40 kg

DRUGS (10)
  1. HUMIRA [Concomitant]
     Active Substance: ADALIMUMAB
     Dosage: UNK
     Dates: start: 20170517, end: 20170517
  2. CIMZIA [Suspect]
     Active Substance: CERTOLIZUMAB PEGOL
     Indication: OFF LABEL USE
  3. DEXAMETHASONE. [Concomitant]
     Active Substance: DEXAMETHASONE
     Indication: PROPHYLAXIS
  4. PROGRAF [Suspect]
     Active Substance: TACROLIMUS\TACROLIMUS ANHYDROUS
     Indication: BEHCET^S SYNDROME
     Dosage: 0.5 MG, ONCE DAILY (QD)
     Route: 048
     Dates: start: 20170518, end: 20170524
  5. HUMIRA [Concomitant]
     Active Substance: ADALIMUMAB
     Indication: BEHCET^S SYNDROME
     Dosage: UNK
     Dates: start: 201605, end: 20161227
  6. CYMBALTA [Concomitant]
     Active Substance: DULOXETINE HYDROCHLORIDE
     Indication: BEHCET^S SYNDROME
     Dosage: 20 MG, ONCE DAILY (QD)
     Route: 048
     Dates: start: 20170504, end: 20170525
  7. BETAMETHASONE. [Concomitant]
     Active Substance: BETAMETHASONE
     Indication: BEHCET^S SYNDROME
     Dosage: 2 DF, 2X/DAY (BID)
     Route: 048
     Dates: start: 20170522, end: 20170603
  8. PROGRAF [Suspect]
     Active Substance: TACROLIMUS\TACROLIMUS ANHYDROUS
     Dosage: 1 MG, ONCE DAILY (QD)
     Route: 048
     Dates: start: 20170525, end: 20170531
  9. PREDONINE [Concomitant]
     Active Substance: PREDNISOLONE
     Indication: BEHCET^S SYNDROME
     Dosage: 5 MG, 2X/DAY (BID)
     Dates: start: 20170517, end: 20170603
  10. CIMZIA [Suspect]
     Active Substance: CERTOLIZUMAB PEGOL
     Indication: BEHCET^S SYNDROME
     Dosage: 400 MG, UNK
     Route: 058
     Dates: start: 20170522, end: 20170522

REACTIONS (2)
  - Multiple organ dysfunction syndrome [Fatal]
  - Off label use [Unknown]

NARRATIVE: CASE EVENT DATE: 20170522
